FAERS Safety Report 4343490-5 (Version None)
Quarter: 2004Q2

REPORT INFORMATION
  Report Type: 
  Country: None (occurrence: None)
  Receive Date: 20040419
  Receipt Date: 20040310
  Transmission Date: 20050107
  Serious: Yes (Death)
  Sender: FDA-Public Use
  Company Number: A-US2003-04081

PATIENT
  Age: 82 Year
  Sex: Female

DRUGS (6)
  1. TRACLEER [Suspect]
     Indication: PULMONARY HYPERTENSION
     Dosage: 62.5 MG BID, ORAL ; 125 MG BID;  62.5 MG, BID
     Route: 048
     Dates: start: 20020625, end: 20020719
  2. TRACLEER [Suspect]
     Indication: PULMONARY HYPERTENSION
     Dosage: 62.5 MG BID, ORAL ; 125 MG BID;  62.5 MG, BID
     Route: 048
     Dates: start: 20020719, end: 20030902
  3. TRACLEER [Suspect]
     Indication: PULMONARY HYPERTENSION
     Dosage: 62.5 MG BID, ORAL ; 125 MG BID;  62.5 MG, BID
     Route: 048
     Dates: start: 20031002, end: 20031201
  4. ADVAIR DISKUS 100/50 [Concomitant]
  5. ASPIRIN COMPOUND (PHENACETIN, CAFFEINE, ACETYLSALICYLIC ACID) [Concomitant]
  6. ALDACTONE [Concomitant]

REACTIONS (2)
  - LIVER FUNCTION TEST ABNORMAL [None]
  - RIGHT VENTRICULAR FAILURE [None]
